FAERS Safety Report 12900034 (Version 1)
Quarter: 2016Q4

REPORT INFORMATION
  Report Type: Spontaneous
  Country: FR (occurrence: FR)
  Receive Date: 20161101
  Receipt Date: 20161101
  Transmission Date: 20170207
  Serious: Yes (Hospitalization)
  Sender: FDA-Public Use
  Company Number: FR-GE HEALTHCARE MEDICAL DIAGNOSTICS-VISP-PR-1610S-0619

PATIENT
  Age: 80 Year
  Sex: Male

DRUGS (10)
  1. PANTOPRAZOLE [Concomitant]
     Active Substance: PANTOPRAZOLE SODIUM
  2. VISIPAQUE [Suspect]
     Active Substance: IODIXANOL
     Indication: DIAGNOSTIC PROCEDURE
  3. BETADINE [Suspect]
     Active Substance: POVIDONE-IODINE
     Route: 003
     Dates: start: 20160929, end: 20160929
  4. MOVICOL [Concomitant]
     Active Substance: POLYETHYLENE GLYCOL 3350\POTASSIUM CHLORIDE\SODIUM BICARBONATE\SODIUM CHLORIDE
  5. METFORMINE [Concomitant]
     Active Substance: METFORMIN HYDROCHLORIDE
  6. LASILIX [Concomitant]
     Active Substance: FUROSEMIDE
  7. VISIPAQUE [Suspect]
     Active Substance: IODIXANOL
     Indication: PRODUCT USED FOR UNKNOWN INDICATION
     Dosage: DOSE NOT REPORTED
     Route: 013
     Dates: start: 20160929, end: 20160929
  8. SITAGLIPTIN [Concomitant]
     Active Substance: SITAGLIPTIN
  9. BETADINE [Suspect]
     Active Substance: POVIDONE-IODINE
     Route: 003
     Dates: start: 20160928, end: 20160928
  10. PREVISCAN [Concomitant]
     Active Substance: FLUINDIONE

REACTIONS (2)
  - Dermatitis exfoliative [Recovered/Resolved]
  - Pruritus [Recovered/Resolved]

NARRATIVE: CASE EVENT DATE: 20160930
